FAERS Safety Report 10600816 (Version 1)
Quarter: 2014Q4

REPORT INFORMATION
  Report Type: Spontaneous
  Country: US (occurrence: None)
  Receive Date: 20141121
  Receipt Date: 20141121
  Transmission Date: 20150529
  Serious: Yes (Other)
  Sender: FDA-Public Use
  Company Number: None

PATIENT
  Age: 41 Year
  Sex: Female
  Weight: 53.6 kg

DRUGS (1)
  1. LUPRON [Suspect]
     Active Substance: LEUPROLIDE ACETATE
     Indication: ENDOMETRIOSIS
     Dates: start: 201312, end: 201406

REACTIONS (13)
  - Depression [None]
  - Attention-seeking behaviour [None]
  - Road traffic accident [None]
  - Insomnia [None]
  - Abnormal behaviour [None]
  - Emotional disorder [None]
  - Vision blurred [None]
  - Social avoidant behaviour [None]
  - Visual impairment [None]
  - Illusion [None]
  - Unevaluable event [None]
  - Mental impairment [None]
  - Compulsive sexual behaviour [None]
